FAERS Safety Report 12825465 (Version 1)
Quarter: 2016Q4

REPORT INFORMATION
  Report Type: Spontaneous
  Country: US (occurrence: US)
  Receive Date: 20161007
  Receipt Date: 20161007
  Transmission Date: 20170207
  Serious: Yes (Death)
  Sender: FDA-Public Use
  Company Number: None

PATIENT
  Age: 75 Year
  Sex: Male

DRUGS (1)
  1. TEMOZOLOMIDE 100MG [Suspect]
     Active Substance: TEMOZOLOMIDE
     Dosage: 100MG CAPS 3 CAPS QD FOR 5 DAYS ORAL
     Route: 048
     Dates: start: 20151125, end: 20161006

REACTIONS (1)
  - Death [None]

NARRATIVE: CASE EVENT DATE: 20160730
